FAERS Safety Report 20449773 (Version 2)
Quarter: 2022Q4

REPORT INFORMATION
  Report Type: Spontaneous
  Country: US (occurrence: US)
  Receive Date: 20220209
  Receipt Date: 20221130
  Transmission Date: 20230113
  Serious: Yes (Other)
  Sender: FDA-Public Use
  Company Number: US-GILEAD-2022-0569154

PATIENT
  Sex: Male
  Weight: 72.562 kg

DRUGS (22)
  1. VIREAD [Suspect]
     Active Substance: TENOFOVIR DISOPROXIL FUMARATE
     Indication: HIV infection
     Dosage: UNK
     Route: 048
     Dates: start: 2003, end: 201608
  2. COMBIVIR [Concomitant]
     Active Substance: LAMIVUDINE\ZIDOVUDINE
  3. EPIVIR [Concomitant]
     Active Substance: LAMIVUDINE
  4. KALETRA [Concomitant]
     Active Substance: LOPINAVIR\RITONAVIR
  5. NORVIR [Concomitant]
     Active Substance: RITONAVIR
  6. PREZISTA [Concomitant]
     Active Substance: DARUNAVIR ETHANOLATE
  7. RETROVIR [Concomitant]
     Active Substance: ZIDOVUDINE
  8. REYATAZ [Concomitant]
     Active Substance: ATAZANAVIR SULFATE
  9. TRIUMEQ [Concomitant]
     Active Substance: ABACAVIR SULFATE\DOLUTEGRAVIR SODIUM\LAMIVUDINE
  10. BRILINTA [Concomitant]
     Active Substance: TICAGRELOR
  11. AZITHROMYCIN [Concomitant]
     Active Substance: AZITHROMYCIN
  12. LORATADINE [Concomitant]
     Active Substance: LORATADINE
  13. FLUTICASONE [Concomitant]
     Active Substance: FLUTICASONE
  14. CARVEDILOL [Concomitant]
     Active Substance: CARVEDILOL
  15. PRAVASTATIN [Concomitant]
     Active Substance: PRAVASTATIN
  16. ATORVASTATIN [Concomitant]
     Active Substance: ATORVASTATIN
  17. MAGNESIUM OXIDE [Concomitant]
     Active Substance: MAGNESIUM OXIDE
  18. TAMSULOSIN [Concomitant]
     Active Substance: TAMSULOSIN
  19. PREDNISONE [Concomitant]
     Active Substance: PREDNISONE
  20. ASPIRIN [Concomitant]
     Active Substance: ASPIRIN
  21. EZETIMIBE [Concomitant]
     Active Substance: EZETIMIBE
  22. CINACALCET [Concomitant]
     Active Substance: CINACALCET

REACTIONS (7)
  - End stage renal disease [Not Recovered/Not Resolved]
  - Emotional distress [Not Recovered/Not Resolved]
  - Anhedonia [Not Recovered/Not Resolved]
  - Anxiety [Not Recovered/Not Resolved]
  - Pain [Not Recovered/Not Resolved]
  - General physical health deterioration [Not Recovered/Not Resolved]
  - Medical diet [Not Recovered/Not Resolved]

NARRATIVE: CASE EVENT DATE: 20040101
